FAERS Safety Report 6100147-8 (Version None)
Quarter: 2009Q1

REPORT INFORMATION
  Report Type: 
  Country: None (occurrence: None)
  Receive Date: 20090303
  Receipt Date: 20090223
  Transmission Date: 20090719
  Serious: Yes (Other)
  Sender: FDA-Public Use
  Company Number: US-JNJFOC-20090206081

PATIENT
  Sex: Male

DRUGS (3)
  1. FAST ACTING MYLANTA ULTRATABS COOL MINT [Suspect]
     Dosage: AT 4:10 AM
     Route: 048
  2. FAST ACTING MYLANTA ULTRATABS COOL MINT [Suspect]
     Indication: ABDOMINAL DISCOMFORT
     Dosage: AT 10:00 PM
     Route: 048
  3. CALTRATE [Concomitant]

REACTIONS (3)
  - DRUG INEFFECTIVE [None]
  - EXPIRED DRUG ADMINISTERED [None]
  - GOUT [None]
